FAERS Safety Report 4647117-4 (Version None)
Quarter: 2005Q2

REPORT INFORMATION
  Report Type: 
  Country: None (occurrence: None)
  Receive Date: 20050331
  Receipt Date: 20050117
  Transmission Date: 20051028
  Serious: No
  Sender: FDA-Public Use
  Company Number: 05P-163-0287994-00

PATIENT
  Age: 50 Year
  Sex: Male
  Weight: 73.4827 kg

DRUGS (2)
  1. HUMIRA [Suspect]
     Indication: RHEUMATOID ARTHRITIS
     Dosage: 40 MG, 1 IN 2 WK, SUBCUTANEOUS
     Route: 058
     Dates: start: 20041101, end: 20041201
  2. PREDNISONE [Concomitant]

REACTIONS (2)
  - DERMATITIS ALLERGIC [None]
  - DIZZINESS [None]
